FAERS Safety Report 5123916-X (Version None)
Quarter: 2006Q3

REPORT INFORMATION
  Report Type: 
  Country: None (occurrence: None)
  Receive Date: 20060803
  Receipt Date: 20051108
  Transmission Date: 20061208
  Serious: Yes (Death)
  Sender: FDA-Public Use
  Company Number: MK200512-0228-1

PATIENT
  Age: 43 Year

DRUGS (2)
  1. TRAMADOL HCL [Suspect]
     Dosage: PO
     Route: 048
  2. AMITRIPTYLINE AND MEPROBAMATE [Suspect]

REACTIONS (1)
  - CARDIO-RESPIRATORY ARREST [None]
